FAERS Safety Report 18033776 (Version 1)
Quarter: 2020Q3

REPORT INFORMATION
  Report Type: Spontaneous
  Country: US (occurrence: US)
  Receive Date: 20200716
  Receipt Date: 20200716
  Transmission Date: 20201103
  Serious: Yes (Death, Other)
  Sender: FDA-Public Use
  Company Number: US-FRESENIUS KABI-FK202007173

PATIENT
  Age: 11 Year
  Sex: Female

DRUGS (14)
  1. METHYLPREDNISOLONE (MANUFACTURER UNKNOWN) [Suspect]
     Active Substance: METHYLPREDNISOLONE
     Indication: IMMUNOSUPPRESSION
     Dosage: METHYLPREDNISOLONE 600 MG BEGAN DURING POST?OPERATIVE WEEK 1
     Route: 065
  2. MYCOPHENOLATE MOFETIL. [Suspect]
     Active Substance: MYCOPHENOLATE MOFETIL
     Indication: IMMUNOSUPPRESSION
     Dosage: MYCOPHENOLATE MOFETIL BEGAN FROM DAY +5 TO DAY +35
     Route: 065
  3. MEROPENEM. [Concomitant]
     Active Substance: MEROPENEM
     Indication: PSEUDOMONAS INFECTION
     Route: 065
  4. FLUDARABINE [Suspect]
     Active Substance: FLUDARABINE PHOSPHATE
     Indication: IMMUNOSUPPRESSION
     Dosage: FLUDARABINE 30 MG/M2/DAY (BATCH NUMBER: UNKNOWN) BEGAN ON DAYS?6 TO?2
     Route: 065
  5. BASILIXIMAB [Suspect]
     Active Substance: BASILIXIMAB
     Indication: IMMUNOSUPPRESSION
     Dosage: BASILIXIMAB 20MG BEGAN DURING POSTOPERATIVE WEEK 1
     Route: 065
  6. CYCLOPHOSPHAMIDE. [Suspect]
     Active Substance: CYCLOPHOSPHAMIDE
     Indication: IMMUNOSUPPRESSION
     Dosage: CYCLOPHOSPHAMIDE 14.5 MG/KG BEGAN  DAYS ?6 AND ?5
     Route: 065
  7. SULFAMETHOXAZOLE/TRIMETHOPRIM [Concomitant]
     Active Substance: SULFAMETHOXAZOLE\TRIMETHOPRIM
     Indication: PRODUCT USED FOR UNKNOWN INDICATION
     Route: 065
  8. GRANULOCYTE COLONY STIMULATING FACTOR [Concomitant]
     Active Substance: GRANULOCYTE COLONY-STIMULATING FACTOR NOS
     Indication: PRODUCT USED FOR UNKNOWN INDICATION
     Route: 065
  9. MEROPENEM. [Concomitant]
     Active Substance: MEROPENEM
     Indication: PNEUMONIA PSEUDOMONAL
  10. BUSULFAN. [Suspect]
     Active Substance: BUSULFAN
     Indication: IMMUNOSUPPRESSION
     Dosage: BUSULFAN 2.7 MG/KG/DAY BEGAN ON DAYS ?4, ?3, AND ?2
     Route: 065
  11. PREDNISOLONE. [Suspect]
     Active Substance: PREDNISOLONE
     Indication: IMMUNOSUPPRESSION
     Dosage: TAPERING DOSES OF PREDNISOLONE WAS STARTED AT 1 MG/KG/DAY UNTIL ITS DISCONTINUATION BY POSTOPERATIVE
     Route: 065
  12. VALGANCICLOVIR. [Concomitant]
     Active Substance: VALGANCICLOVIR
     Indication: PNEUMONIA PSEUDOMONAL
  13. TACROLIMUS. [Suspect]
     Active Substance: TACROLIMUS
     Indication: IMMUNOSUPPRESSION
     Dosage: TACROLIMUS WAS ADMINISTERED TILL THE TIME OF HSCT (DATE UNKNOWN) AND WHICH WAS DISCONTINUED ON DAY ?
     Route: 065
  14. VALGANCICLOVIR. [Concomitant]
     Active Substance: VALGANCICLOVIR
     Indication: PSEUDOMONAS INFECTION
     Route: 065

REACTIONS (5)
  - Systemic candida [Unknown]
  - Lymphopenia [Unknown]
  - Venoocclusive disease [Fatal]
  - Pseudomonas infection [Unknown]
  - Herpes simplex viraemia [Unknown]
